FAERS Safety Report 10452383 (Version 1)
Quarter: 2014Q3

REPORT INFORMATION
  Report Type: Spontaneous
  Country: US (occurrence: US)
  Receive Date: 20140915
  Receipt Date: 20140915
  Transmission Date: 20150326
  Serious: No
  Sender: FDA-Public Use
  Company Number: US-009507513-1408USA016777

PATIENT
  Age: 22 Year
  Sex: Female

DRUGS (2)
  1. NEXPLANON [Suspect]
     Active Substance: ETONOGESTREL
     Indication: CONTRACEPTION
     Dosage: UNK
     Route: 059
     Dates: start: 201310, end: 201312
  2. AVION [Concomitant]
     Dosage: LOW DOSE

REACTIONS (1)
  - Metrorrhagia [Recovered/Resolved with Sequelae]

NARRATIVE: CASE EVENT DATE: 2013
